FAERS Safety Report 10195577 (Version 2)
Quarter: 2014Q2

REPORT INFORMATION
  Report Type: Report from Study
  Country: CA (occurrence: CA)
  Receive Date: 20140527
  Receipt Date: 20140527
  Transmission Date: 20141212
  Serious: Yes (Other)
  Sender: FDA-Public Use
  Company Number: CA-ROCHE-1354325

PATIENT
  Age: 48 Year
  Sex: Female

DRUGS (3)
  1. PEGASYS [Suspect]
     Indication: CHRONIC HEPATITIS C
     Route: 058
     Dates: start: 20140219
  2. COPEGUS [Suspect]
     Indication: CHRONIC HEPATITIS C
     Dosage: 28 TABLETS WEEKLY
     Route: 048
     Dates: start: 20140219
  3. TYLENOL [Concomitant]
     Indication: PAIN
     Dosage: PRN
     Route: 065

REACTIONS (6)
  - Anger [Unknown]
  - Fatigue [Not Recovered/Not Resolved]
  - Pain [Not Recovered/Not Resolved]
  - Headache [Not Recovered/Not Resolved]
  - Decreased appetite [Not Recovered/Not Resolved]
  - Myalgia [Not Recovered/Not Resolved]
